FAERS Safety Report 7578120-2 (Version None)
Quarter: 2011Q2

REPORT INFORMATION
  Report Type: 
  Country: None (occurrence: None)
  Receive Date: 20110628
  Receipt Date: 20110607
  Transmission Date: 20111010
  Serious: Yes (Death, Congenital Anomaly)
  Sender: FDA-Public Use
  Company Number: A0683119A

PATIENT
  Sex: Female

DRUGS (1)
  1. PAXIL [Suspect]
     Indication: DEPRESSION
     Route: 064

REACTIONS (11)
  - CONGENITAL GASTRIC ANOMALY [None]
  - CONGENITAL EPIGLOTTAL ANOMALY [None]
  - CONGENITAL HYDROCEPHALUS [None]
  - RESPIRATORY TRACT MALFORMATION [None]
  - MICROGNATHIA [None]
  - CONGENITAL ORAL MALFORMATION [None]
  - EXTREMITY CONTRACTURE [None]
  - DRUG EXPOSURE DURING PREGNANCY [None]
  - CONGENITAL MUSCULOSKELETAL ANOMALY [None]
  - TALIPES [None]
  - PTERYGIUM COLLI [None]
